FAERS Safety Report 25350625 (Version 1)
Quarter: 2025Q2

REPORT INFORMATION
  Report Type: Spontaneous
  Country: IR (occurrence: None)
  Receive Date: 20250523
  Receipt Date: 20250523
  Transmission Date: 20250717
  Serious: Yes (Hospitalization)
  Sender: NATCO PHARMA
  Company Number: IR-NATCOUSA-2025-NATCOUSA-000308

PATIENT
  Age: 23 Year
  Sex: Female

DRUGS (1)
  1. CITALOPRAM [Suspect]
     Active Substance: CITALOPRAM
     Indication: Product used for unknown indication
     Route: 048

REACTIONS (3)
  - Atrioventricular block first degree [Unknown]
  - Toxicity to various agents [Unknown]
  - Overdose [Unknown]
